FAERS Safety Report 9943807 (Version 2)
Quarter: 2014Q1

REPORT INFORMATION
  Report Type: Report from Study
  Country: US (occurrence: US)
  Receive Date: 20140303
  Receipt Date: 20140303
  Transmission Date: 20141002
  Serious: No
  Sender: FDA-Public Use
  Company Number: US-ABBVIE-13P-163-1043985-00

PATIENT
  Age: 47 Year
  Sex: Female

DRUGS (5)
  1. HUMIRA [Suspect]
     Indication: CROHN^S DISEASE
     Dosage: 160 MG LOADING DOSE
     Dates: start: 20121222, end: 20121222
  2. HUMIRA [Suspect]
     Dates: start: 20130106, end: 20130106
  3. HUMIRA [Suspect]
  4. PHENERGAN [Concomitant]
     Indication: NAUSEA
  5. HYDROCODONE [Concomitant]
     Indication: PAIN

REACTIONS (3)
  - Malaise [Not Recovered/Not Resolved]
  - Clostridium difficile infection [Not Recovered/Not Resolved]
  - Drug ineffective [Not Recovered/Not Resolved]
